FAERS Safety Report 22238020 (Version 4)
Quarter: 2025Q1

REPORT INFORMATION
  Report Type: Spontaneous
  Country: CA (occurrence: CA)
  Receive Date: 20230421
  Receipt Date: 20250217
  Transmission Date: 20250408
  Serious: Yes (Hospitalization, Other)
  Sender: CELLTRION
  Company Number: CA-CELLTRION INC.-2023CA008086

PATIENT

DRUGS (21)
  1. RITUXIMAB [Suspect]
     Active Substance: RITUXIMAB
     Indication: Systemic lupus erythematosus
     Route: 042
  2. RITUXIMAB [Suspect]
     Active Substance: RITUXIMAB
     Indication: Rheumatoid arthritis
     Route: 042
  3. ACTEMRA [Suspect]
     Active Substance: TOCILIZUMAB
     Indication: Systemic lupus erythematosus
     Route: 065
  4. ACTEMRA [Suspect]
     Active Substance: TOCILIZUMAB
     Indication: Rheumatoid arthritis
  5. ACTEMRA [Suspect]
     Active Substance: TOCILIZUMAB
     Indication: Systemic lupus erythematosus
     Dosage: 800 MILLIGRAM, 1 EVERY 4 WEEKS
     Route: 042
  6. ACTEMRA [Suspect]
     Active Substance: TOCILIZUMAB
     Indication: Rheumatoid arthritis
  7. HYDROXYCHLOROQUINE [Suspect]
     Active Substance: HYDROXYCHLOROQUINE
     Indication: Product used for unknown indication
     Route: 065
  8. PREDNISONE [Suspect]
     Active Substance: PREDNISONE
     Indication: Product used for unknown indication
     Route: 065
  9. ACCUTANE [Concomitant]
     Active Substance: ISOTRETINOIN
  10. ASPIRIN [Concomitant]
     Active Substance: ASPIRIN
     Route: 065
  11. BUPROPION [Concomitant]
     Active Substance: BUPROPION
  12. CYCLOSPORINE [Concomitant]
     Active Substance: CYCLOSPORINE
     Route: 065
  13. ESCITALOPRAM [Concomitant]
     Active Substance: ESCITALOPRAM OXALATE
  14. FOLIC ACID [Concomitant]
     Active Substance: FOLIC ACID
  15. METHOTREXATE [Concomitant]
     Active Substance: METHOTREXATE
     Indication: Product used for unknown indication
     Dosage: 25 MILLIGRAM, 1 EVERY 1 WEEKS
     Route: 058
  16. MOMETASONE FUROATE [Concomitant]
     Active Substance: MOMETASONE FUROATE
  17. MYCOPHENOLATE MOFETIL [Concomitant]
     Active Substance: MYCOPHENOLATE MOFETIL
  18. NIFEDIPINE [Concomitant]
     Active Substance: NIFEDIPINE
  19. QUETIAPINE [Concomitant]
     Active Substance: QUETIAPINE
  20. RAMIPRIL [Concomitant]
     Active Substance: RAMIPRIL
  21. WELLBUTRIN [Concomitant]
     Active Substance: BUPROPION HYDROCHLORIDE

REACTIONS (19)
  - Antiphospholipid antibodies positive [Not Recovered/Not Resolved]
  - Arthritis [Not Recovered/Not Resolved]
  - Chronic cutaneous lupus erythematosus [Not Recovered/Not Resolved]
  - Cutaneous vasculitis [Not Recovered/Not Resolved]
  - Myocarditis [Not Recovered/Not Resolved]
  - Proteinuria [Not Recovered/Not Resolved]
  - Serous retinopathy [Not Recovered/Not Resolved]
  - Synovitis [Not Recovered/Not Resolved]
  - Systemic lupus erythematosus rash [Not Recovered/Not Resolved]
  - Thrombosis [Not Recovered/Not Resolved]
  - Weight increased [Not Recovered/Not Resolved]
  - Cellulitis [Not Recovered/Not Resolved]
  - Osteomyelitis [Not Recovered/Not Resolved]
  - Weight decreased [Not Recovered/Not Resolved]
  - Drug hypersensitivity [Not Recovered/Not Resolved]
  - Therapeutic response shortened [Not Recovered/Not Resolved]
  - Treatment failure [Not Recovered/Not Resolved]
  - Off label use [Not Recovered/Not Resolved]
  - Intentional product use issue [Unknown]
